FAERS Safety Report 15459227 (Version 2)
Quarter: 2018Q4

REPORT INFORMATION
  Report Type: Report from Study
  Country: US (occurrence: US)
  Receive Date: 20181003
  Receipt Date: 20181015
  Transmission Date: 20190204
  Serious: Yes (Other)
  Sender: FDA-Public Use
  Company Number: US-ASTELLAS-2018US042922

PATIENT
  Sex: Female

DRUGS (3)
  1. PREDNISONE. [Concomitant]
     Active Substance: PREDNISONE
     Indication: PRODUCT USED FOR UNKNOWN INDICATION
     Dosage: UNK UNK, UNKNOWN FREQ.
     Route: 065
  2. ERLOTINIB [Suspect]
     Active Substance: ERLOTINIB
     Indication: LUNG CANCER METASTATIC
     Dosage: UNK UNK, UNKNOWN FREQ.
     Route: 065
  3. XOLAIR [Suspect]
     Active Substance: OMALIZUMAB
     Indication: IDIOPATHIC URTICARIA
     Route: 042

REACTIONS (19)
  - Nasal congestion [Unknown]
  - Presyncope [Unknown]
  - Pyrexia [Unknown]
  - Abdominal pain [Unknown]
  - Dyspnoea [Unknown]
  - Anaphylactic reaction [Unknown]
  - Flushing [Unknown]
  - Dizziness [Unknown]
  - Hyperhidrosis [Unknown]
  - Circulatory collapse [Unknown]
  - Abdominal distension [Unknown]
  - Neutrophilia [Unknown]
  - Nausea [Unknown]
  - White blood cell count increased [Unknown]
  - Urticaria [Unknown]
  - Chest discomfort [Unknown]
  - Chills [Unknown]
  - Diarrhoea [Unknown]
  - Vomiting [Unknown]
